FAERS Safety Report 6686179-X (Version None)
Quarter: 2010Q2

REPORT INFORMATION
  Report Type: 
  Country: None (occurrence: None)
  Receive Date: 20100419
  Receipt Date: 20100413
  Transmission Date: 20101027
  Serious: Yes (Hospitalization)
  Sender: FDA-Public Use
  Company Number: PHHY2010FR23333

PATIENT
  Sex: Female

DRUGS (5)
  1. EXELON [Suspect]
     Indication: DEMENTIA ALZHEIMER'S TYPE
     Dosage: 4.6 MG, QD
     Route: 062
  2. SINEMET [Suspect]
     Indication: PARKINSON'S DISEASE
     Dosage: 1 DF, TID
  3. MOTILIUM [Concomitant]
     Dosage: 20 MG, TID
  4. OMEPRAZOLE [Concomitant]
     Dosage: 20 MG DAILY
  5. SINEMET [Suspect]
     Indication: PARKINSON'S DISEASE
     Dosage: 1 DF, TID

REACTIONS (3)
  - LOSS OF CONSCIOUSNESS [None]
  - MALAISE [None]
  - ORTHOSTATIC HYPOTENSION [None]
